FAERS Safety Report 5535489-8 (Version None)
Quarter: 2007Q4

REPORT INFORMATION
  Report Type: 
  Country: None (occurrence: None)
  Receive Date: 20071203
  Receipt Date: 20071203
  Transmission Date: 20080405
  Serious: Yes (Disabling, Other)
  Sender: FDA-Public Use
  Company Number: None

PATIENT
  Sex: Male
  Weight: 92.9874 kg

DRUGS (1)
  1. CHANTIX [Suspect]
     Indication: SMOKING CESSATION THERAPY
     Dosage: ONE TABLET   TWICE DAILEY  PO
     Route: 048
     Dates: start: 20071001, end: 20071130

REACTIONS (3)
  - AGGRESSION [None]
  - HEART RATE ABNORMAL [None]
  - NIGHTMARE [None]
